FAERS Safety Report 9562887 (Version 1)
Quarter: 2013Q3

REPORT INFORMATION
  Report Type: Spontaneous
  Country: US (occurrence: US)
  Receive Date: 20130927
  Receipt Date: 20130927
  Transmission Date: 20140515
  Serious: No
  Sender: FDA-Public Use
  Company Number: US-009507513-1309USA002546

PATIENT
  Age: 22 Year
  Sex: Female
  Weight: 103.4 kg

DRUGS (2)
  1. IMPLANON [Suspect]
     Indication: CONTRACEPTION
     Dosage: 1 ROD / THREE YEARS
     Route: 059
     Dates: start: 201109
  2. ABILIFY [Concomitant]

REACTIONS (4)
  - Amenorrhoea [Unknown]
  - Headache [Not Recovered/Not Resolved]
  - Nausea [Recovering/Resolving]
  - Vomiting [Unknown]
